FAERS Safety Report 17392737 (Version 2)
Quarter: 2020Q1

REPORT INFORMATION
  Report Type: Spontaneous
  Country: FR (occurrence: FR)
  Receive Date: 20200207
  Receipt Date: 20200219
  Transmission Date: 20200409
  Serious: Yes (Hospitalization, Other)
  Sender: FDA-Public Use
  Company Number: FR-JNJFOC-20200118451

PATIENT
  Age: 88 Year
  Sex: Female
  Weight: 40 kg

DRUGS (3)
  1. RIVAROXABAN [Suspect]
     Active Substance: RIVAROXABAN
     Route: 048
     Dates: start: 201802
  2. AMIODARONE [Concomitant]
     Active Substance: AMIODARONE
     Dosage: UNK
  3. RIVAROXABAN [Suspect]
     Active Substance: RIVAROXABAN
     Indication: ARRHYTHMIA
     Dosage: 10 MG, QD
     Route: 048

REACTIONS (6)
  - Pollakiuria [Unknown]
  - Product use in unapproved indication [Unknown]
  - Urinary bladder haemorrhage [Unknown]
  - Off label use [Unknown]
  - Blood urine present [Unknown]
  - Vertigo [Unknown]

NARRATIVE: CASE EVENT DATE: 20191203
